FAERS Safety Report 7200270-0 (Version None)
Quarter: 2010Q4

REPORT INFORMATION
  Report Type: 
  Country: None (occurrence: None)
  Receive Date: 20101228
  Receipt Date: 20101215
  Transmission Date: 20110411
  Serious: Yes (Other)
  Sender: FDA-Public Use
  Company Number: B0672914A

PATIENT
  Sex: Female

DRUGS (3)
  1. ACITRETIN [Suspect]
     Route: 065
  2. CONTRACEPTIVE [Concomitant]
  3. UNKNOWN [Concomitant]
     Route: 048

REACTIONS (4)
  - FATIGUE [None]
  - LIBIDO DECREASED [None]
  - MUSCLE FATIGUE [None]
  - STRESS [None]
